FAERS Safety Report 11750479 (Version 3)
Quarter: 2016Q2

REPORT INFORMATION
  Report Type: Spontaneous
  Country: US (occurrence: US)
  Receive Date: 20151118
  Receipt Date: 20160415
  Transmission Date: 20160815
  Serious: Yes (Hospitalization, Disabling)
  Sender: FDA-Public Use
  Company Number: US-ENDO PHARMACEUTICALS INC.-2015-004182

PATIENT
  Age: 66 Year
  Sex: Male
  Weight: 78.09 kg

DRUGS (3)
  1. EFFEXOR [Concomitant]
     Active Substance: VENLAFAXINE HYDROCHLORIDE
     Indication: PAIN
  2. EFFEXOR [Concomitant]
     Active Substance: VENLAFAXINE HYDROCHLORIDE
     Indication: ANXIETY
     Route: 065
     Dates: start: 2006
  3. TESTIM [Suspect]
     Active Substance: TESTOSTERONE
     Indication: ANDROGEN REPLACEMENT THERAPY
     Route: 062
     Dates: start: 2008, end: 201002

REACTIONS (8)
  - Anaemia [Unknown]
  - Cognitive disorder [Unknown]
  - Pneumonia [Recovered/Resolved]
  - Acute myocardial infarction [Not Recovered/Not Resolved]
  - Acute respiratory failure [Unknown]
  - Acute kidney injury [Recovered/Resolved]
  - Atrioventricular block second degree [Recovered/Resolved]
  - Multiple organ dysfunction syndrome [Unknown]

NARRATIVE: CASE EVENT DATE: 20100220
